FAERS Safety Report 12086471 (Version 1)
Quarter: 2016Q1

REPORT INFORMATION
  Report Type: Spontaneous
  Country: US (occurrence: US)
  Receive Date: 20160217
  Receipt Date: 20160217
  Transmission Date: 20160526
  Serious: No
  Sender: FDA-Public Use
  Company Number: US-ALLERGAN-1500753US

PATIENT
  Age: 70 Year
  Sex: Female

DRUGS (1)
  1. RESTASIS [Suspect]
     Active Substance: CYCLOSPORINE
     Indication: DRY EYE
     Dosage: 1-2 GTT IN BOTH EYES
     Route: 047
     Dates: start: 2014, end: 201501

REACTIONS (10)
  - Eye inflammation [Unknown]
  - Eye pruritus [Unknown]
  - Vision blurred [Unknown]
  - Inappropriate schedule of drug administration [Unknown]
  - Photopsia [Unknown]
  - Blepharitis [Unknown]
  - Incorrect dose administered [Unknown]
  - Eye irritation [Unknown]
  - Altered visual depth perception [Unknown]
  - Ocular hyperaemia [Unknown]
